FAERS Safety Report 6320205-2 (Version None)
Quarter: 2009Q3

REPORT INFORMATION
  Report Type: 
  Country: None (occurrence: None)
  Receive Date: 20090822
  Receipt Date: 20081024
  Transmission Date: 20100115
  Serious: No
  Sender: FDA-Public Use
  Company Number: US-ABBOTT-08P-163-0483894-00

PATIENT
  Sex: Female
  Weight: 74.002 kg

DRUGS (12)
  1. NIASPAN [Suspect]
     Indication: LOW DENSITY LIPOPROTEIN INCREASED
     Dosage: AT NIGHT
     Route: 048
     Dates: start: 20081020
  2. NIASPAN [Suspect]
     Indication: HIGH DENSITY LIPOPROTEIN DECREASED
  3. IBUPROFEN [Concomitant]
     Indication: DRUG USE FOR UNKNOWN INDICATION
     Dosage: AT NIGHT
  4. POTASSIUM CHLORIDE [Concomitant]
     Indication: DRUG USE FOR UNKNOWN INDICATION
     Dosage: TABLET
  5. BUDESONIDE [Concomitant]
     Indication: SEASONAL ALLERGY
     Dosage: INHALER
     Route: 045
  6. LEVASA OMEGA 3 [Concomitant]
     Indication: BLOOD CHOLESTEROL
     Route: 048
  7. CALCIUM CARBONATE [Concomitant]
     Indication: DRUG USE FOR UNKNOWN INDICATION
  8. METAXALONE [Concomitant]
     Indication: MUSCLE SPASMS
  9. ALPRAZOLAM [Concomitant]
     Indication: ANXIOLYTIC THERAPY
  10. FUROSEMIDE [Concomitant]
     Indication: BENIGN INTRACRANIAL HYPERTENSION
     Route: 048
  11. PANTOPRAZOLE SODIUM [Concomitant]
     Indication: GASTROOESOPHAGEAL REFLUX DISEASE
     Route: 048
  12. POTASSIUM CHLORIDE [Concomitant]
     Indication: MINERAL SUPPLEMENTATION
     Route: 048

REACTIONS (2)
  - HOT FLUSH [None]
  - PRURITUS [None]
